FAERS Safety Report 15491349 (Version 1)
Quarter: 2018Q4

REPORT INFORMATION
  Report Type: Report from Study
  Country: DE (occurrence: DE)
  Receive Date: 20181012
  Receipt Date: 20181012
  Transmission Date: 20190205
  Serious: Yes (Hospitalization)
  Sender: FDA-Public Use
  Company Number: DE-TEVA-2018-DE-962680

PATIENT
  Age: 62 Year
  Sex: Female
  Weight: 54 kg

DRUGS (18)
  1. OXALIPLATIN. [Suspect]
     Active Substance: OXALIPLATIN
     Indication: COLORECTAL CANCER METASTATIC
     Dosage: 130 MG
     Route: 065
     Dates: start: 20180711
  2. PANITUMUMAB [Suspect]
     Active Substance: PANITUMUMAB
     Indication: COLORECTAL CANCER METASTATIC
     Dosage: 325 MG
     Route: 042
     Dates: start: 20180822
  3. OXALIPLATIN. [Suspect]
     Active Substance: OXALIPLATIN
     Dosage: 300 MG
     Route: 065
     Dates: start: 20180905
  4. FLUOROURACIL. [Suspect]
     Active Substance: FLUOROURACIL
     Dosage: 625 MG
     Route: 040
     Dates: start: 20180725
  5. FLUOROURACIL. [Suspect]
     Active Substance: FLUOROURACIL
     Dosage: 3745 MG
     Route: 042
     Dates: start: 20180725
  6. FLUOROURACIL. [Suspect]
     Active Substance: FLUOROURACIL
     Dosage: 620 MG
     Route: 040
     Dates: start: 20180711
  7. PANITUMUMAB [Suspect]
     Active Substance: PANITUMUMAB
     Dosage: 325 MG
     Route: 042
     Dates: start: 20180711
  8. FOLINIC ACID [Suspect]
     Active Substance: LEUCOVORIN
     Dosage: 625 MG
     Route: 065
     Dates: start: 20180725
  9. FOLINIC ACID [Suspect]
     Active Substance: LEUCOVORIN
     Dosage: 620 MG
     Route: 065
     Dates: start: 20180711
  10. FLUOROURACIL. [Suspect]
     Active Substance: FLUOROURACIL
     Dosage: 615 MG
     Route: 040
     Dates: start: 20180808
  11. FLUOROURACIL. [Suspect]
     Active Substance: FLUOROURACIL
     Dosage: 3650 MG
     Route: 042
     Dates: start: 20180905
  12. FOLINIC ACID [Suspect]
     Active Substance: LEUCOVORIN
     Dosage: 600 MG
     Route: 065
     Dates: start: 20180905
  13. FLUOROURACIL. [Suspect]
     Active Substance: FLUOROURACIL
     Dosage: 3695 MG
     Route: 042
     Dates: start: 20180808
  14. FOLINIC ACID [Suspect]
     Active Substance: LEUCOVORIN
     Indication: COLORECTAL CANCER METASTATIC
     Dosage: 615 MG
     Route: 065
     Dates: start: 20180808
  15. FLUOROURACIL. [Suspect]
     Active Substance: FLUOROURACIL
     Indication: COLORECTAL CANCER METASTATIC
     Dosage: 600 MG
     Route: 040
     Dates: start: 20180905
  16. FLUOROURACIL. [Suspect]
     Active Substance: FLUOROURACIL
     Dosage: 3740 MG
     Route: 042
     Dates: start: 20180711
  17. PANITUMUMAB [Suspect]
     Active Substance: PANITUMUMAB
     Dosage: 315 MG
     Route: 042
     Dates: start: 20180808
  18. PANITUMUMAB [Suspect]
     Active Substance: PANITUMUMAB
     Dosage: 300 MG
     Route: 042
     Dates: start: 20180905

REACTIONS (1)
  - Abdominal pain [Recovered/Resolved]

NARRATIVE: CASE EVENT DATE: 20180822
